FAERS Safety Report 9814839 (Version 2)
Quarter: 2014Q1

REPORT INFORMATION
  Report Type: Spontaneous
  Country: US (occurrence: US)
  Receive Date: 20140113
  Receipt Date: 20140331
  Transmission Date: 20141002
  Serious: Yes (Death)
  Sender: FDA-Public Use
  Company Number: US-GLAXOSMITHKLINE-A1055985A

PATIENT
  Age: 28 Year
  Sex: Male

DRUGS (2)
  1. MEPRON [Suspect]
     Indication: PROPHYLAXIS AGAINST HIV INFECTION
     Route: 048
     Dates: start: 20131218
  2. ZITHROMAX [Concomitant]

REACTIONS (1)
  - Death [Fatal]
